FAERS Safety Report 5686003-8 (Version None)
Quarter: 2008Q1

REPORT INFORMATION
  Report Type: 
  Country: None (occurrence: None)
  Receive Date: 20080328
  Receipt Date: 20080324
  Transmission Date: 20080703
  Serious: Yes (Life-Threatening)
  Sender: FDA-Public Use
  Company Number: JP-BAYER-200810537BYL

PATIENT
  Age: 94 Year
  Sex: Female

DRUGS (4)
  1. CIPROXAN-I.V. [Suspect]
     Indication: PNEUMONIA LEGIONELLA
     Dosage: TOTAL DAILY DOSE: 300 MG
     Route: 042
     Dates: start: 20080317, end: 20080317
  2. CIPROXAN-I.V. [Interacting]
     Dosage: TOTAL DAILY DOSE: 600 MG
     Route: 042
     Dates: start: 20080318, end: 20080318
  3. CIPROXAN-I.V. [Interacting]
     Dosage: TOTAL DAILY DOSE: 300 MG
     Route: 042
     Dates: start: 20080319, end: 20080319
  4. DAONIL [Interacting]
     Indication: DIABETES MELLITUS

REACTIONS (2)
  - DIABETES MELLITUS INADEQUATE CONTROL [None]
  - HYPOGLYCAEMIA [None]
